FAERS Safety Report 5830030-4 (Version None)
Quarter: 2008Q3

REPORT INFORMATION
  Report Type: 
  Country: None (occurrence: None)
  Receive Date: 20080801
  Receipt Date: 20080724
  Transmission Date: 20090109
  Serious: Yes (Other)
  Sender: FDA-Public Use
  Company Number: US-JNJCH-2008019378

PATIENT
  Age: 70 Year
  Sex: Male
  Weight: 72.6 kg

DRUGS (1)
  1. FRESHBURST LISTERINE MOUTHWASH [Suspect]
     Indication: DENTAL CARE
     Dosage: TEXT:SMALL AMOUNT 2X A DAY
     Route: 048

REACTIONS (2)
  - APPLICATION SITE BURN [None]
  - HYPOAESTHESIA ORAL [None]
